FAERS Safety Report 4390201-3 (Version None)
Quarter: 2004Q3

REPORT INFORMATION
  Report Type: 
  Country: None (occurrence: None)
  Receive Date: 20040706
  Receipt Date: 20040624
  Transmission Date: 20050211
  Serious: Yes (Other)
  Sender: FDA-Public Use
  Company Number: CH-GLAXOSMITHKLINE-B0337540A

PATIENT
  Age: 3 Year
  Sex: Female

DRUGS (10)
  1. ZOVIRAX [Suspect]
     Indication: ANTIVIRAL PROPHYLAXIS
     Dosage: 600MG PER DAY
     Route: 042
     Dates: start: 20040526, end: 20040614
  2. LASIX [Suspect]
     Indication: HYPERTENSION
     Dosage: 20MG PER DAY
     Route: 042
  3. ANTRA [Suspect]
     Dosage: 20MG PER DAY
     Route: 042
  4. VFEND [Suspect]
     Indication: ASPERGILLOSIS
     Dosage: 120MG PER DAY
     Route: 042
     Dates: start: 20040531
  5. RENITEN [Suspect]
     Indication: HYPERTENSION
     Dosage: .6MG PER DAY
     Route: 042
  6. DEFIBROTIDE [Concomitant]
     Dosage: 100MG FOUR TIMES PER DAY
     Route: 042
  7. GRANOCYTE [Concomitant]
     Indication: STEM CELL TRANSPLANT
     Route: 058
  8. KONAKION [Concomitant]
     Indication: PROPHYLAXIS
     Route: 042
  9. TARGOCID [Concomitant]
     Dates: start: 20040526, end: 20040611
  10. MERONEM [Concomitant]
     Dates: start: 20040526, end: 20040611

REACTIONS (1)
  - SINUS TACHYCARDIA [None]
